FAERS Safety Report 10073940 (Version 1)
Quarter: 2014Q2

REPORT INFORMATION
  Report Type: Spontaneous
  Country: TR (occurrence: TR)
  Receive Date: 20140413
  Receipt Date: 20140413
  Transmission Date: 20141212
  Serious: Yes (Other)
  Sender: FDA-Public Use
  Company Number: TR-MYLANLABS-2014S1007771

PATIENT
  Age: 17 Year
  Sex: Male

DRUGS (6)
  1. METFORMIN [Suspect]
     Indication: INSULIN RESISTANCE
     Dosage: PLANS TO INCREASE TO 250MG TWICE DAILY 1W LATER
     Route: 065
  2. METFORMIN [Suspect]
     Indication: INSULIN RESISTANCE
     Route: 065
  3. VINCRISTINE [Concomitant]
     Indication: ACUTE LYMPHOCYTIC LEUKAEMIA
     Dosage: PART OF TR-ALL BFM 2000 PROTOCOL
     Route: 065
  4. ASPARAGINASE [Concomitant]
     Indication: ACUTE LYMPHOCYTIC LEUKAEMIA
     Dosage: PART OF TR-ALL BFM 2000 PROTOCOL
     Route: 065
  5. DAUNORUBICIN [Concomitant]
     Indication: ACUTE LYMPHOCYTIC LEUKAEMIA
     Dosage: PART OF TR-ALL BFM 2000 PROTOCOL
     Route: 065
  6. PREDNISONE [Concomitant]
     Indication: ACUTE LYMPHOCYTIC LEUKAEMIA
     Dosage: ADR ONSET ON DAY 11 OF PROTOCOL; CHEMOTHERAPY LATER COMPLETED
     Route: 065

REACTIONS (1)
  - Haemolytic anaemia [Recovering/Resolving]
